FAERS Safety Report 23854248 (Version 1)
Quarter: 2024Q2

REPORT INFORMATION
  Report Type: Spontaneous
  Country: AU (occurrence: AU)
  Receive Date: 20240514
  Receipt Date: 20240514
  Transmission Date: 20240715
  Serious: Yes (Disabling)
  Sender: FDA-Public Use
  Company Number: AU-ORGANON-O2405AUS000832

PATIENT
  Age: 31 Year
  Sex: Female

DRUGS (1)
  1. ETONOGESTREL [Suspect]
     Active Substance: ETONOGESTREL
     Indication: Contraception
     Dosage: 1 IMPLANT (68 MG UPPER ARM)
     Route: 059
     Dates: start: 2022, end: 202207

REACTIONS (11)
  - Hand deformity [Not Recovered/Not Resolved]
  - Implant site injury [Unknown]
  - Electric shock sensation [Unknown]
  - Implant site pain [Unknown]
  - Peripheral coldness [Unknown]
  - Skin discolouration [Unknown]
  - Hypoaesthesia [Unknown]
  - Mobility decreased [Unknown]
  - Anxiety [Unknown]
  - Complication of device removal [Recovered/Resolved]
  - Wrong technique in device usage process [Unknown]

NARRATIVE: CASE EVENT DATE: 20220101
